FAERS Safety Report 18134773 (Version 1)
Quarter: 2020Q3

REPORT INFORMATION
  Report Type: Spontaneous
  Country: US (occurrence: US)
  Receive Date: 20200810
  Receipt Date: 20200810
  Transmission Date: 20201103
  Serious: Yes (Death)
  Sender: FDA-Public Use
  Company Number: None

PATIENT
  Age: 17 Month
  Sex: Male
  Weight: 9.27 kg

DRUGS (12)
  1. CYPROHEPTADINE. [Concomitant]
     Active Substance: CYPROHEPTADINE
     Dates: start: 20200120, end: 20200807
  2. MAGNESIUM CARBONATE [Concomitant]
     Active Substance: MAGNESIUM CARBONATE
     Dates: start: 20200401, end: 20200807
  3. OXYCODONE [Concomitant]
     Active Substance: OXYCODONE
     Dates: start: 20200805, end: 20200807
  4. ANTACID [Concomitant]
     Active Substance: ALUMINUM HYDROXIDE\CALCIUM CARBONATE\DIMETHICONE\MAGNESIUM HYDROXIDE
     Dates: start: 20200120, end: 20200807
  5. ONDANSETRON [Concomitant]
     Active Substance: ONDANSETRON
     Dates: start: 20191216, end: 20200807
  6. TAZEMETOSTAT [Suspect]
     Active Substance: TAZEMETOSTAT
     Indication: RHABDOID TUMOUR
     Route: 048
     Dates: start: 20200730, end: 20200805
  7. TAZEMETOSTAT [Suspect]
     Active Substance: TAZEMETOSTAT
     Indication: HEPATIC CANCER METASTATIC
     Route: 048
     Dates: start: 20200730, end: 20200805
  8. DIPHENHYDRAMINE. [Concomitant]
     Active Substance: DIPHENHYDRAMINE
     Dates: start: 20191216, end: 20200807
  9. MIRALAX [Concomitant]
     Active Substance: POLYETHYLENE GLYCOL 3350
     Dates: start: 20191216, end: 20200807
  10. SULFAMETHOXAZOLE?TRIMETHOPRIM [Concomitant]
     Active Substance: SULFAMETHOXAZOLE\TRIMETHOPRIM
     Dates: start: 20191216, end: 20200807
  11. LACTULOSE. [Concomitant]
     Active Substance: LACTULOSE
     Dates: start: 20191216, end: 20200807
  12. DIAZEPAM. [Concomitant]
     Active Substance: DIAZEPAM
     Dates: start: 20200805, end: 20200807

REACTIONS (1)
  - Disease progression [None]

NARRATIVE: CASE EVENT DATE: 20200807
